FAERS Safety Report 6856183-7 (Version None)
Quarter: 2010Q3

REPORT INFORMATION
  Report Type: 
  Country: None (occurrence: None)
  Receive Date: 20100719
  Receipt Date: 20100713
  Transmission Date: 20110219
  Serious: Yes (Death, Hospitalization, Other)
  Sender: FDA-Public Use
  Company Number: PHHY2009BR15131

PATIENT
  Sex: Male
  Weight: 145 kg

DRUGS (10)
  1. FORASEQ [Suspect]
     Indication: EMPHYSEMA
     Dosage: UNK
     Dates: start: 20030101
  2. FORASEQ [Suspect]
     Indication: ASTHMA
  3. VERAPAMIL HYDROCHLORIDE [Concomitant]
     Indication: ARRHYTHMIA
     Dosage: THREE TO FOUR TABLETS DAILY
     Route: 048
  4. MAREVAN [Concomitant]
     Indication: ANTICOAGULANT THERAPY
     Dosage: ONE TABLET DAILY
     Route: 048
  5. ATROVENT [Concomitant]
     Indication: EMPHYSEMA
     Dosage: UNK
  6. ATROVENT [Concomitant]
     Indication: DYSPNOEA
  7. FLIXOTIDE [Concomitant]
     Indication: EMPHYSEMA
     Dosage: UNK
  8. FLIXOTIDE [Concomitant]
     Indication: DYSPNOEA
  9. LEXOTAN [Concomitant]
  10. MODURETIC 5-50 [Concomitant]
     Dosage: UNK

REACTIONS (12)
  - ABASIA [None]
  - ABDOMINAL PAIN UPPER [None]
  - BEDRIDDEN [None]
  - DEATH [None]
  - DEPRESSION [None]
  - DYSPNOEA [None]
  - EATING DISORDER [None]
  - FALL [None]
  - HYPOTENSION [None]
  - OBESITY [None]
  - SURGERY [None]
  - WEIGHT INCREASED [None]
